FAERS Safety Report 25757327 (Version 2)
Quarter: 2025Q3

REPORT INFORMATION
  Report Type: Spontaneous
  Country: GB (occurrence: GB)
  Receive Date: 20250903
  Receipt Date: 20250930
  Transmission Date: 20251021
  Serious: Yes (Other)
  Sender: MYLAN
  Company Number: GB-MYLANLABS-2025M1070420

PATIENT
  Age: 25 Year
  Sex: Female
  Weight: 59.5 kg

DRUGS (6)
  1. CLOZARIL [Suspect]
     Active Substance: CLOZAPINE
     Indication: Psychotic disorder
     Dosage: 12.5 MILLIGRAM, QD
     Dates: start: 20150209, end: 20150722
  2. CLOZARIL [Suspect]
     Active Substance: CLOZAPINE
     Dosage: UNK, BID (100MG OM, 150MG ON)
     Dates: start: 20150723, end: 20151110
  3. CLOZARIL [Suspect]
     Active Substance: CLOZAPINE
     Dosage: UNK, BID (100MG MORNING, 137.5 MG NIGHT)
     Dates: start: 20151111
  4. DEPAKOTE [Concomitant]
     Active Substance: DIVALPROEX SODIUM
     Indication: Mood swings
     Dosage: 750 MILLIGRAM, BID (TWICE DAILY)
     Dates: start: 20150721
  5. AMISULPRIDE [Concomitant]
     Active Substance: AMISULPRIDE
     Indication: Psychotic disorder
     Dosage: 25 MILLIGRAM, BID (TWICE DAILY)
     Dates: start: 20160413, end: 20160518
  6. AMISULPRIDE [Concomitant]
     Active Substance: AMISULPRIDE
     Dosage: 50 MILLIGRAM, BID (TWICE DAILY)
     Dates: start: 20160519

REACTIONS (2)
  - Thrombocytopenia [Unknown]
  - Off label use [Unknown]

NARRATIVE: CASE EVENT DATE: 20150209
